FAERS Safety Report 6979588-2 (Version None)
Quarter: 2010Q3

REPORT INFORMATION
  Report Type: 
  Country: None (occurrence: None)
  Receive Date: 20100910
  Receipt Date: 20100910
  Transmission Date: 20110219
  Serious: Yes (Other)
  Sender: FDA-Public Use
  Company Number: None

PATIENT
  Age: 66 Year
  Sex: Female
  Weight: 93.2 kg

DRUGS (1)
  1. TOBRAMYCIN [Suspect]
     Indication: CHALAZION
     Dosage: 2 DROPS IN RIGHT EYE 4 TIMES A DAY
     Route: 047
     Dates: start: 20100601, end: 20100801

REACTIONS (3)
  - DRUG HYPERSENSITIVITY [None]
  - EYELID PTOSIS [None]
  - NO THERAPEUTIC RESPONSE [None]
